FAERS Safety Report 16639467 (Version 1)
Quarter: 2019Q3

REPORT INFORMATION
  Report Type: Report from Study
  Country: FR (occurrence: FR)
  Receive Date: 20190726
  Receipt Date: 20190726
  Transmission Date: 20191004
  Serious: Yes (Death, Hospitalization, Other)
  Sender: FDA-Public Use
  Company Number: FR-SEATTLE GENETICS-2018SGN01080

PATIENT
  Age: 67 Year
  Sex: Male
  Weight: 59 kg

DRUGS (7)
  1. GEMCITABINE HYDROCHLORIDE. [Concomitant]
     Active Substance: GEMCITABINE HYDROCHLORIDE
     Indication: NON-HODGKIN^S LYMPHOMA
     Dosage: 1432 MILLIGRAM
     Route: 042
     Dates: start: 20180622, end: 20181012
  2. VINORELBINE [Concomitant]
     Active Substance: VINORELBINE TARTRATE
     Indication: NON-HODGKIN^S LYMPHOMA
     Dosage: 36 MILLIGRAM
     Route: 042
     Dates: start: 20180622, end: 20181012
  3. BENDAMUSTINE [Concomitant]
     Active Substance: BENDAMUSTINE
     Indication: NON-HODGKIN^S LYMPHOMA
     Dosage: 157 MILLIGRAM
     Route: 042
     Dates: start: 20181012, end: 20181219
  4. BLEOMYCIN SULFATE [Concomitant]
     Active Substance: BLEOMYCIN SULFATE
     Indication: NON-HODGKIN^S LYMPHOMA
     Dosage: 17.4 MILLIGRAM
     Route: 042
     Dates: start: 20180622, end: 20181012
  5. DACARBAZINE. [Concomitant]
     Active Substance: DACARBAZINE
     Indication: NON-HODGKIN^S LYMPHOMA
     Dosage: 650 MILLIGRAM
     Route: 042
     Dates: start: 20180622, end: 20181012
  6. BRENTUXIMAB VEDOTIN-MPI [Suspect]
     Active Substance: BRENTUXIMAB VEDOTIN
     Indication: ANGIOIMMUNOBLASTIC T-CELL LYMPHOMA
     Dosage: 100 MG, UNK
     Route: 042
     Dates: start: 20180223, end: 20180518
  7. VINBLASTINE [Concomitant]
     Active Substance: VINBLASTINE
     Indication: NON-HODGKIN^S LYMPHOMA
     Dosage: 10.5 MILLIGRAM
     Route: 042
     Dates: start: 20180226, end: 20180313

REACTIONS (7)
  - Pyrexia [Unknown]
  - Cachexia [Unknown]
  - Anaemia [Unknown]
  - Angioimmunoblastic T-cell lymphoma [Fatal]
  - Lung disorder [Recovered/Resolved]
  - Off label use [Unknown]
  - Abdominal distension [Unknown]

NARRATIVE: CASE EVENT DATE: 20180223
